FAERS Safety Report 4300325-4 (Version None)
Quarter: 2004Q1

REPORT INFORMATION
  Report Type: 
  Country: None (occurrence: None)
  Receive Date: 20040218
  Receipt Date: 20040203
  Transmission Date: 20041129
  Serious: Yes (Life-Threatening, Hospitalization)
  Sender: FDA-Public Use
  Company Number: 2002IM000657

PATIENT
  Age: 47 Year
  Sex: Male
  Weight: 101.6057 kg

DRUGS (14)
  1. ACTIMMUNE [Suspect]
     Indication: HEPATIC CIRRHOSIS
     Dosage: 200 UG;TIW;SUBCUTANEOUS
     Route: 058
     Dates: start: 20020208, end: 20020906
  2. ACTIMMUNE [Suspect]
     Indication: HEPATIC FIBROSIS
     Dosage: 200 UG;TIW;SUBCUTANEOUS
     Route: 058
     Dates: start: 20020208, end: 20020906
  3. ACTIMMUNE [Suspect]
     Indication: HEPATITIS C
     Dosage: 200 UG;TIW;SUBCUTANEOUS
     Route: 058
     Dates: start: 20020208, end: 20020906
  4. AMBIEN [Concomitant]
  5. TYLENOL (CAPLET) [Concomitant]
  6. RELAFEN [Concomitant]
  7. SUDAFED S.A. [Concomitant]
  8. NAPROSYN [Concomitant]
  9. FELDENE [Concomitant]
  10. SOLU-MEDROL [Concomitant]
  11. PROTONIX [Concomitant]
  12. VIAGRA [Concomitant]
  13. XANAX [Concomitant]
  14. COUMADIN [Concomitant]

REACTIONS (5)
  - ATRIAL FIBRILLATION [None]
  - CARDIAC FAILURE CONGESTIVE [None]
  - CHEST PAIN [None]
  - NEUTROPHIL COUNT DECREASED [None]
  - WHITE BLOOD CELL COUNT DECREASED [None]
